FAERS Safety Report 22028671 (Version 1)
Quarter: 2023Q1

REPORT INFORMATION
  Report Type: Spontaneous
  Country: JP (occurrence: JP)
  Receive Date: 20230223
  Receipt Date: 20230223
  Transmission Date: 20230417
  Serious: Yes (Other)
  Sender: FDA-Public Use
  Company Number: JP-OTSUKA-2023_004644

PATIENT
  Age: 61 Year
  Sex: Male

DRUGS (5)
  1. BUSULFEX [Suspect]
     Active Substance: BUSULFAN
     Indication: Unrelated donor bone marrow transplantation therapy
     Dosage: UNK
     Route: 065
  2. FLUDARABINE PHOSPHATE [Suspect]
     Active Substance: FLUDARABINE PHOSPHATE
     Indication: Unrelated donor bone marrow transplantation therapy
     Dosage: UNK
     Route: 065
  3. TACROLIMUS [Suspect]
     Active Substance: TACROLIMUS
     Indication: Product used for unknown indication
     Dosage: REDUCED
     Route: 065
  4. TACROLIMUS [Suspect]
     Active Substance: TACROLIMUS
     Dosage: UNK
     Route: 065
  5. METHOTREXATE [Suspect]
     Active Substance: METHOTREXATE
     Indication: Product used for unknown indication
     Dosage: SHORT TERM, UNK
     Route: 065

REACTIONS (3)
  - Guillain-Barre syndrome [Unknown]
  - Epstein-Barr virus infection reactivation [Unknown]
  - Cytomegalovirus infection reactivation [Unknown]
